FAERS Safety Report 8950773 (Version 4)
Quarter: 2014Q4

REPORT INFORMATION
  Report Type: Report from Study
  Country: CA (occurrence: CA)
  Receive Date: 20121207
  Receipt Date: 20141024
  Transmission Date: 20150529
  Serious: Yes (Hospitalization, Other)
  Sender: FDA-Public Use
  Company Number: CA-AMGEN-CANSP2012074580

PATIENT
  Age: 59 Year
  Sex: Male
  Weight: 109 kg

DRUGS (5)
  1. ENBREL [Suspect]
     Active Substance: ETANERCEPT
     Indication: RHEUMATOID ARTHRITIS
     Dosage: 50 MG, QWK
     Route: 058
     Dates: start: 20120405
  2. FOLATE [Concomitant]
     Active Substance: FOLATE SODIUM
     Dosage: 1 MG, DAILY
     Route: 048
     Dates: start: 2008
  3. METHOTREXATE [Concomitant]
     Active Substance: METHOTREXATE
     Indication: RHEUMATOID ARTHRITIS
     Dosage: 2.5 MG, 10 TABLETS PER WEEK
     Route: 048
     Dates: start: 2008
  4. PREDNISONE. [Concomitant]
     Active Substance: PREDNISONE
     Dosage: 5 MG, QD
     Route: 048
  5. TYLENOL [Concomitant]
     Active Substance: ACETAMINOPHEN
     Dosage: UNK UNK, AS NECESSARY
     Route: 048

REACTIONS (8)
  - Scratch [Recovered/Resolved]
  - Cerebrovascular accident [Recovered/Resolved]
  - Infection [Recovered/Resolved]
  - Joint swelling [Not Recovered/Not Resolved]
  - Cellulitis [Recovered/Resolved]
  - Stress [Unknown]
  - Peripheral swelling [Recovered/Resolved]
  - Erythema [Recovered/Resolved]

NARRATIVE: CASE EVENT DATE: 2012
